FAERS Safety Report 18213665 (Version 1)
Quarter: 2020Q3

REPORT INFORMATION
  Report Type: Spontaneous
  Country: US (occurrence: US)
  Receive Date: 20200831
  Receipt Date: 20200831
  Transmission Date: 20201103
  Serious: No
  Sender: FDA-Public Use
  Company Number: None

PATIENT
  Age: 39 Year
  Sex: Female
  Weight: 94 kg

DRUGS (1)
  1. ZOLPIDEM (ZOLPIDEM TARTRATE 10MG TAB) [Suspect]
     Active Substance: ZOLPIDEM TARTRATE
     Indication: INSOMNIA
     Route: 048
     Dates: start: 20180514, end: 20200820

REACTIONS (2)
  - Memory impairment [None]
  - Behavioural induced insufficient sleep syndrome [None]

NARRATIVE: CASE EVENT DATE: 20200820
